FAERS Safety Report 15538429 (Version 1)
Quarter: 2018Q4

REPORT INFORMATION
  Report Type: Spontaneous
  Country: US (occurrence: US)
  Receive Date: 20181022
  Receipt Date: 20181022
  Transmission Date: 20190205
  Serious: Yes (Other)
  Sender: FDA-Public Use
  Company Number: US-ELI_LILLY_AND_COMPANY-US201810009204

PATIENT
  Sex: Male

DRUGS (1)
  1. ERBITUX [Suspect]
     Active Substance: CETUXIMAB
     Indication: HEAD AND NECK CANCER
     Dosage: 440 MG, WEEKLY (1/W)
     Route: 042
     Dates: start: 201709

REACTIONS (6)
  - Chills [Recovering/Resolving]
  - Dry mouth [Recovering/Resolving]
  - Lip swelling [Recovering/Resolving]
  - Pyrexia [Recovering/Resolving]
  - Rash [Recovering/Resolving]
  - Skin lesion [Unknown]

NARRATIVE: CASE EVENT DATE: 20181017
